FAERS Safety Report 4668531-7 (Version None)
Quarter: 2005Q2

REPORT INFORMATION
  Report Type: 
  Country: None (occurrence: None)
  Receive Date: 20050523
  Receipt Date: 20050516
  Transmission Date: 20051028
  Serious: Yes (Hospitalization)
  Sender: FDA-Public Use
  Company Number: US-ABBOTT-05P-163-0300543-00

PATIENT
  Sex: Female

DRUGS (9)
  1. HUMIRA 40 MG/ 0.8 ML PRE-FILLED SYRINGE [Suspect]
     Indication: RHEUMATOID ARTHRITIS
     Route: 058
     Dates: start: 20030101
  2. AMLODIPINE BESYLATE [Concomitant]
     Indication: CARDIAC DISORDER
     Route: 048
     Dates: start: 20050101
  3. FUROSEMIDE [Concomitant]
     Indication: DRUG USE FOR UNKNOWN INDICATION
     Route: 048
     Dates: start: 20050101
  4. ATENOLOL [Concomitant]
     Indication: BLOOD PRESSURE
     Route: 048
     Dates: start: 20050101
  5. CLOPIDOGREL BISULFATE [Concomitant]
     Indication: DRUG USE FOR UNKNOWN INDICATION
     Route: 048
     Dates: start: 20050101
  6. EPOETIN ALFA [Concomitant]
     Indication: ANAEMIA
     Route: 050
     Dates: start: 20050101
  7. AMIODARONE HYDROCHLORIDE [Concomitant]
     Indication: DRUG USE FOR UNKNOWN INDICATION
     Route: 048
     Dates: start: 20050101
  8. WARFARIN SODIUM [Concomitant]
     Indication: DRUG USE FOR UNKNOWN INDICATION
     Route: 048
     Dates: start: 20050101
  9. POTASSIUM CHLORIDE [Concomitant]
     Indication: DRUG USE FOR UNKNOWN INDICATION
     Route: 048
     Dates: start: 20050101

REACTIONS (4)
  - ARTERIAL OCCLUSIVE DISEASE [None]
  - ARTHRALGIA [None]
  - DRUG INEFFECTIVE [None]
  - PAIN IN EXTREMITY [None]
